FAERS Safety Report 9286808 (Version 2)
Quarter: 2013Q3

REPORT INFORMATION
  Report Type: Spontaneous
  Country: JP (occurrence: JP)
  Receive Date: 20130513
  Receipt Date: 20130812
  Transmission Date: 20140515
  Serious: No
  Sender: FDA-Public Use
  Company Number: JP-UCBSA-085446

PATIENT
  Age: 55 Year
  Sex: Male

DRUGS (1)
  1. EKEPPRA [Suspect]
     Indication: EPILEPSY
     Dosage: 500 MG
     Route: 048

REACTIONS (1)
  - Iron deficiency anaemia [Unknown]
